FAERS Safety Report 26116348 (Version 1)
Quarter: 2025Q4

REPORT INFORMATION
  Report Type: Spontaneous
  Country: US (occurrence: None)
  Receive Date: 20251202
  Receipt Date: 20251202
  Transmission Date: 20260118
  Serious: Yes (Hospitalization)
  Sender: FDA-CTU
  Company Number: None

PATIENT
  Sex: Male

DRUGS (2)
  1. VYNDAMAX [Suspect]
     Active Substance: TAFAMIDIS
     Indication: Cardiomyopathy
     Dosage: FREQUENCY : DAILY;?
     Route: 048
     Dates: start: 20250116
  2. AMIODARONE [Concomitant]
     Active Substance: AMIODARONE

REACTIONS (5)
  - Septic shock [None]
  - Dizziness [None]
  - Dizziness [None]
  - Illness [None]
  - Therapy interrupted [None]
